FAERS Safety Report 13939889 (Version 1)
Quarter: 2017Q3

REPORT INFORMATION
  Report Type: Spontaneous
  Country: US (occurrence: US)
  Receive Date: 20170906
  Receipt Date: 20170906
  Transmission Date: 20171127
  Serious: No
  Sender: FDA-Public Use
  Company Number: US-MYLANLABS-2017M1035268

PATIENT
  Age: 54 Year
  Sex: Male

DRUGS (2)
  1. MARIJUANA [Concomitant]
     Active Substance: CANNABIS SATIVA SUBSP. INDICA TOP
     Indication: NEUROPATHY PERIPHERAL
     Dosage: UNK
  2. MODAFINIL TABLETS, USP [Suspect]
     Active Substance: MODAFINIL
     Indication: POOR QUALITY SLEEP
     Dosage: 200 MG, QD
     Route: 048
     Dates: start: 20170525

REACTIONS (1)
  - Drug ineffective [Not Recovered/Not Resolved]

NARRATIVE: CASE EVENT DATE: 20170525
